FAERS Safety Report 10075387 (Version 1)
Quarter: 2014Q2

REPORT INFORMATION
  Report Type: Spontaneous
  Country: AT (occurrence: AT)
  Receive Date: 20140414
  Receipt Date: 20140414
  Transmission Date: 20141212
  Serious: Yes (Other)
  Sender: FDA-Public Use
  Company Number: AT-AMGEN-AUTSP2014025191

PATIENT
  Age: 70 Year
  Sex: Female

DRUGS (2)
  1. XGEVA [Suspect]
     Indication: PRODUCT USED FOR UNKNOWN INDICATION
     Dosage: UNK
     Route: 065
     Dates: start: 201311
  2. CAL D VITA [Concomitant]
     Dosage: UNK

REACTIONS (6)
  - Disease progression [Unknown]
  - Rib fracture [Unknown]
  - Hip fracture [Unknown]
  - Scapula fracture [Unknown]
  - Spinal fracture [Unknown]
  - Hypocalcaemia [Unknown]
